FAERS Safety Report 5285740-7 (Version None)
Quarter: 2007Q1

REPORT INFORMATION
  Report Type: 
  Country: None (occurrence: None)
  Receive Date: 20070130
  Receipt Date: 20060221
  Transmission Date: 20070707
  Serious: Yes (Life-Threatening)
  Sender: FDA-Public Use
  Company Number: 2006RL000054

PATIENT
  Age: 52 Year
  Sex: Male

DRUGS (3)
  1. PROPAFENONE HCL [Suspect]
     Indication: ATRIAL FIBRILLATION
     Dosage: 140 MG;X1;IV
     Route: 042
     Dates: start: 20060131, end: 20060131
  2. PROPAFENONE HCL [Suspect]
     Indication: CARDIAC FLUTTER
     Dosage: 140 MG;X1;IV
     Route: 042
     Dates: start: 20060131, end: 20060131
  3. CALCIPARINA CHOAY [Concomitant]

REACTIONS (2)
  - BRADYCARDIA [None]
  - CARDIAC ARREST [None]
